FAERS Safety Report 5578779-5 (Version None)
Quarter: 2007Q4

REPORT INFORMATION
  Report Type: 
  Country: None (occurrence: None)
  Receive Date: 20071228
  Receipt Date: 20071218
  Transmission Date: 20080405
  Serious: Yes (Other)
  Sender: FDA-Public Use
  Company Number: 163-21880-07121035

PATIENT
  Age: 65 Year
  Sex: Male

DRUGS (3)
  1. REVLIMID [Suspect]
     Indication: MULTIPLE MYELOMA
     Dosage: 25 MG, OD, ORAL
     Route: 048
     Dates: start: 20071001, end: 20071021
  2. DEXAMETHASONE TAB [Concomitant]
  3. VELCADE [Concomitant]

REACTIONS (2)
  - SEPTIC SHOCK [None]
  - STEVENS-JOHNSON SYNDROME [None]
